FAERS Safety Report 16538900 (Version 3)
Quarter: 2019Q3

REPORT INFORMATION
  Report Type: Spontaneous
  Country: JP (occurrence: JP)
  Receive Date: 20190708
  Receipt Date: 20190718
  Transmission Date: 20191004
  Serious: Yes (Hospitalization, Other)
  Sender: FDA-Public Use
  Company Number: JP-BRISTOL-MYERS SQUIBB COMPANY-BMS-2019-066008

PATIENT
  Age: 50 Year
  Sex: Female
  Weight: 33.7 kg

DRUGS (4)
  1. LANSOPRAZOLE. [Concomitant]
     Active Substance: LANSOPRAZOLE
     Indication: PEPTIC ULCER
     Dosage: 15 MILLIGRAM EVERYDAY
     Route: 048
     Dates: start: 20190306, end: 20190701
  2. FENTOS [Concomitant]
     Active Substance: FENTANYL
     Indication: CANCER PAIN
     Dosage: 2 MILLIGRAM, EVERYDAY
     Route: 062
     Dates: start: 20190507
  3. ZOLPIDEM TARTRATE. [Concomitant]
     Active Substance: ZOLPIDEM TARTRATE
     Indication: INSOMNIA
     Dosage: 5 MILLIGRAM EVERYDAY
     Route: 048
     Dates: start: 20180422, end: 20190701
  4. OPDIVO [Suspect]
     Active Substance: NIVOLUMAB
     Indication: GASTRIC CANCER
     Dosage: 240 MILLIGRAM, Q2WK
     Route: 041
     Dates: start: 20190424, end: 20190605

REACTIONS (2)
  - Malignant neoplasm progression [Unknown]
  - Gastric stenosis [Not Recovered/Not Resolved]

NARRATIVE: CASE EVENT DATE: 20190629
